FAERS Safety Report 16260861 (Version 1)
Quarter: 2019Q2

REPORT INFORMATION
  Report Type: Spontaneous
  Country: GB (occurrence: GB)
  Receive Date: 20190501
  Receipt Date: 20190501
  Transmission Date: 20190711
  Serious: Yes (Hospitalization)
  Sender: FDA-Public Use
  Company Number: GB-TEVA-2019-GB-1043806

PATIENT
  Age: 82 Year
  Sex: Male

DRUGS (11)
  1. NEBIVOLOL. [Concomitant]
     Active Substance: NEBIVOLOL
  2. IRBESARTAN. [Concomitant]
     Active Substance: IRBESARTAN
  3. ISOSORBIDE MONONITRATE. [Concomitant]
     Active Substance: ISOSORBIDE MONONITRATE
  4. FINASTERIDE. [Concomitant]
     Active Substance: FINASTERIDE
  5. LANSOPRAZOLE. [Concomitant]
     Active Substance: LANSOPRAZOLE
  6. SALBUTAMOL [Concomitant]
     Active Substance: ALBUTEROL
  7. VERAPAMIL [Suspect]
     Active Substance: VERAPAMIL HYDROCHLORIDE
     Indication: ESSENTIAL HYPERTENSION
     Dosage: 120 MILLIGRAM DAILY; IN THE MORNING
     Route: 048
     Dates: start: 20180501, end: 20190327
  8. DOXAZOSIN [Concomitant]
     Active Substance: DOXAZOSIN\DOXAZOSIN MESYLATE
  9. WARFARIN [Concomitant]
     Active Substance: WARFARIN
  10. RELVAR ELLIPTA [Concomitant]
     Active Substance: FLUTICASONE FUROATE\VILANTEROL TRIFENATATE
  11. DIGOXIN. [Concomitant]
     Active Substance: DIGOXIN

REACTIONS (2)
  - Presyncope [Recovered/Resolved]
  - Dizziness [Unknown]

NARRATIVE: CASE EVENT DATE: 20190326
